FAERS Safety Report 12985079 (Version 1)
Quarter: 2016Q4

REPORT INFORMATION
  Report Type: Spontaneous
  Country: US (occurrence: US)
  Receive Date: 20161129
  Receipt Date: 20161129
  Transmission Date: 20170207
  Serious: No
  Sender: FDA-Public Use
  Company Number: US-TAIHO ONCOLOGY INC-EU-2016-02340

PATIENT
  Sex: Male

DRUGS (7)
  1. LONSURF [Suspect]
     Active Substance: TIPIRACIL HYDROCHLORIDE\TRIFLURIDINE
     Indication: COLON CANCER
     Route: 048
     Dates: start: 201608, end: 201608
  2. AZITHROMYCIN ANHYDROUS. [Concomitant]
     Active Substance: AZITHROMYCIN ANHYDROUS
     Dosage: NI
  3. HYDROCODONE BITARTRATE. [Concomitant]
     Active Substance: HYDROCODONE BITARTRATE
     Dosage: NI
  4. LONSURF [Suspect]
     Active Substance: TIPIRACIL HYDROCHLORIDE\TRIFLURIDINE
     Indication: COLON CANCER
     Route: 048
     Dates: start: 20160604, end: 201608
  5. PREDNISONE. [Concomitant]
     Active Substance: PREDNISONE
     Dosage: NI
  6. MUCINEX [Concomitant]
     Active Substance: GUAIFENESIN
     Dosage: NI
  7. CLARITIN [Concomitant]
     Active Substance: LORATADINE
     Dosage: NI

REACTIONS (1)
  - Drug ineffective [Unknown]

NARRATIVE: CASE EVENT DATE: 2016
